FAERS Safety Report 20923940 (Version 3)
Quarter: 2022Q3

REPORT INFORMATION
  Report Type: Spontaneous
  Country: US (occurrence: US)
  Receive Date: 20220607
  Receipt Date: 20220728
  Transmission Date: 20221027
  Serious: Yes (Other)
  Sender: FDA-Public Use
  Company Number: US-PFIZER INC-202200798908

PATIENT
  Age: 50 Year
  Sex: Female

DRUGS (1)
  1. PAXLOVID [Suspect]
     Active Substance: NIRMATRELVIR\RITONAVIR
     Indication: COVID-19 treatment
     Dosage: UNK, 2X/DAY (1 DOSE)
     Route: 048
     Dates: start: 20220516, end: 20220521

REACTIONS (5)
  - Vaginal infection [Recovered/Resolved]
  - Conjunctivitis [Recovered/Resolved]
  - Rash [Unknown]
  - Vulvovaginal rash [Unknown]
  - Eye disorder [Unknown]

NARRATIVE: CASE EVENT DATE: 20220526
